FAERS Safety Report 9173325 (Version 1)
Quarter: 2013Q1

REPORT INFORMATION
  Report Type: Spontaneous
  Country: US (occurrence: None)
  Receive Date: 20130313
  Receipt Date: 20130313
  Transmission Date: 20140127
  Serious: Yes (Other)
  Sender: FDA-Public Use
  Company Number: AUR-APL-2013-02037

PATIENT
  Age: 69 Year
  Sex: Female

DRUGS (8)
  1. LISINOPRIL (LISINOPRIL) [Suspect]
     Indication: PRODUCT USED FOR UNKNOWN INDICATION
     Dosage: ORAL
     Route: 048
  2. ATENOLOL (ATENOLOL) [Suspect]
     Indication: PRODUCT USED FOR UNKNOWN INDICATION
     Dosage: UNKNOWN
  3. PRILOSEC [Suspect]
     Indication: PRODUCT USED FOR UNKNOWN INDICATION
     Route: 048
  4. JAKAFI [Suspect]
     Indication: POLYCYTHAEMIA VERA
     Dosage: 40 MG (20 MG, 2 IN 1 D), ORAL
     Route: 048
     Dates: start: 20120202
  5. ELAVIL (AMITRIPTYLINE HYDROCHLORIDE) [Suspect]
     Indication: ANTIDEPRESSANT THERAPY
     Dosage: UNKNOWN
     Dates: start: 2012
  6. REMERON (MIRTAZAPINE) [Concomitant]
  7. ASPIRIN (ACETYLSALICYLIC ACID) [Concomitant]
  8. CALCIUM LACTATE (CALCIUM LACTATE) [Concomitant]

REACTIONS (23)
  - Muscle spasms [None]
  - Condition aggravated [None]
  - Musculoskeletal discomfort [None]
  - Chills [None]
  - Temperature intolerance [None]
  - Insomnia [None]
  - Depressed mood [None]
  - Palpitations [None]
  - Feeling abnormal [None]
  - Feeling cold [None]
  - Bone pain [None]
  - Body temperature increased [None]
  - Blood pressure systolic decreased [None]
  - Toxicity to various agents [None]
  - Dyspnoea [None]
  - Weight increased [None]
  - Aortic valve incompetence [None]
  - Mitral valve incompetence [None]
  - Tricuspid valve incompetence [None]
  - Pulmonary hypertension [None]
  - Body temperature decreased [None]
  - Muscle spasms [None]
  - Bone marrow failure [None]
